FAERS Safety Report 8741223 (Version 2)
Quarter: 2012Q4

REPORT INFORMATION
  Report Type: 
  Country: JP (occurrence: JP)
  Receive Date: 20120824
  Receipt Date: 20121210
  Transmission Date: 20130627
  Serious: Yes (Hospitalization)
  Sender: FDA-Public Use
  Company Number: JP-009507513-2012SP018333

PATIENT
  Age: 65 Year
  Sex: Female
  Weight: 62 kg

DRUGS (18)
  1. PEGINTRON [Suspect]
     Indication: CHRONIC HEPATITIS C
     Dosage: 1.5 Microgram per kilogram, qw
     Route: 058
     Dates: start: 20120126, end: 20120209
  2. PEGINTRON [Suspect]
     Dosage: 1.5 Microgram per kilogram, qw
     Route: 058
     Dates: start: 20120223, end: 20120301
  3. REBETOL [Suspect]
     Indication: CHRONIC HEPATITIS C
     Dosage: 800 mg, QD
     Route: 048
     Dates: start: 20120126, end: 20120208
  4. REBETOL [Suspect]
     Dosage: 400 mg, QD
     Route: 048
     Dates: start: 20120209, end: 20120307
  5. TELAVIC [Suspect]
     Indication: CHRONIC HEPATITIS C
     Dosage: 1500 mg, QD
     Route: 048
     Dates: start: 20120126, end: 20120214
  6. TELAVIC [Suspect]
     Dosage: 750 mg, QD
     Route: 048
     Dates: start: 20120221, end: 20120307
  7. DIOVAN [Concomitant]
     Indication: HYPERTENSION
     Dosage: 80 mg,qd : formulation: POR
     Route: 048
  8. REBAMIPIDE [Concomitant]
     Indication: PROPHYLAXIS
     Dosage: 100 mg per day, prn : Formulation:POR
     Route: 048
     Dates: start: 20120126
  9. REBAMIPIDE [Concomitant]
     Dosage: UNK UNK, prn ,Formulation:POR
     Route: 048
     Dates: end: 20120308
  10. URSO [Concomitant]
     Indication: CHRONIC HEPATITIS C
     Dosage: 900 mg, Once : Formualtion:POR
     Route: 048
     Dates: start: 20120416
  11. PROHEPARUM [Concomitant]
     Indication: CHRONIC HEPATITIS C
     Dosage: 6 DF, qd
     Route: 048
     Dates: start: 20120416
  12. CO DIO [Concomitant]
     Indication: HYPERTENSION
     Dosage: 1 DF, qd
     Route: 048
  13. NIFEDIPINE CR SAWAI [Concomitant]
     Indication: HYPERTENSION
     Dosage: 20 mg, Once : Formulation: POR
     Route: 048
  14. FAMOTIDINE [Concomitant]
     Indication: GASTRITIS
     Dosage: 20 mg, Once
     Route: 048
  15. FAMOTIDINE [Concomitant]
     Indication: PROPHYLAXIS
     Dosage: 100mg/day, as needed.
     Route: 048
     Dates: start: 20120126
  16. FAMOTIDINE [Concomitant]
     Indication: HEPATITIS C
     Dosage: 7.5 g, Once
     Route: 048
     Dates: start: 20120711
  17. GLYCYRON [Concomitant]
     Indication: CHRONIC HEPATITIS C
     Dosage: 6 DF, Once
     Route: 048
     Dates: start: 20120416
  18. JUZEN-TAIHO-TO [Suspect]
     Indication: CHRONIC HEPATITIS C
     Dosage: 7.5 g, qd
     Dates: start: 20120711

REACTIONS (10)
  - Decreased appetite [Recovered/Resolved]
  - Dizziness [Recovering/Resolving]
  - Deafness [Recovered/Resolved]
  - Pyrexia [None]
  - Platelet count decreased [None]
  - Anaemia [None]
  - Nausea [None]
  - White blood cell count decreased [None]
  - Hyperuricaemia [None]
  - Deafness neurosensory [None]
